FAERS Safety Report 8158556-1 (Version None)
Quarter: 2012Q1

REPORT INFORMATION
  Report Type: 
  Country: None (occurrence: None)
  Receive Date: 20120223
  Receipt Date: 20120213
  Transmission Date: 20120608
  Serious: Yes (Life-Threatening, Hospitalization)
  Sender: FDA-Public Use
  Company Number: US-SANOFI-AVENTIS-2012SA009300

PATIENT
  Age: 62 Year
  Sex: Female

DRUGS (2)
  1. OPTICLICK [Suspect]
  2. LANTUS [Suspect]
     Dosage: DOSE:45 UNIT(S)
     Route: 058

REACTIONS (4)
  - STENT PLACEMENT [None]
  - SEPTIC SHOCK [None]
  - RENAL FAILURE [None]
  - CARDIAC FAILURE [None]
